FAERS Safety Report 21688047 (Version 1)
Quarter: 2022Q4

REPORT INFORMATION
  Report Type: Spontaneous
  Country: CN (occurrence: CN)
  Receive Date: 20221206
  Receipt Date: 20221206
  Transmission Date: 20230113
  Serious: Yes (Life-Threatening, Other)
  Sender: FDA-Public Use
  Company Number: CN-MYLANLABS-2022M1135968

PATIENT
  Age: 14 Year
  Sex: Female
  Weight: 59 kg

DRUGS (2)
  1. ZOLOFT [Suspect]
     Active Substance: SERTRALINE HYDROCHLORIDE
     Indication: Overdose
     Dosage: 25 DOSAGE FORM, QD
     Route: 048
     Dates: start: 20221124, end: 20221124
  2. QUETIAPINE FUMARATE [Suspect]
     Active Substance: QUETIAPINE FUMARATE
     Indication: Overdose
     Dosage: 27 DOSAGE FORM, QD
     Route: 048
     Dates: start: 20221124, end: 20221124

REACTIONS (1)
  - Poisoning [Recovering/Resolving]

NARRATIVE: CASE EVENT DATE: 20221124
